FAERS Safety Report 13515531 (Version 4)
Quarter: 2018Q1

REPORT INFORMATION
  Report Type: Report from Study
  Country: US (occurrence: US)
  Receive Date: 20170504
  Receipt Date: 20180112
  Transmission Date: 20180508
  Serious: Yes (Hospitalization)
  Sender: FDA-Public Use
  Company Number: US-ACTELION-A-US2017-153374

PATIENT
  Age: 75 Year
  Sex: Female
  Weight: 70.75 kg

DRUGS (12)
  1. TRACLEER [Suspect]
     Active Substance: BOSENTAN
     Indication: PULMONARY HYPERTENSION
     Dosage: 125 MG, BID
     Route: 048
  2. OXYCODONE [Concomitant]
     Active Substance: OXYCODONE
  3. OMEPRAZOLE. [Concomitant]
     Active Substance: OMEPRAZOLE
  4. SINGULAIR [Concomitant]
     Active Substance: MONTELUKAST SODIUM
  5. OXYGEN. [Concomitant]
     Active Substance: OXYGEN
  6. WARFARIN [Concomitant]
     Active Substance: WARFARIN
  7. LISINOPRIL. [Concomitant]
     Active Substance: LISINOPRIL
  8. SYMBICORT [Concomitant]
     Active Substance: BUDESONIDE\FORMOTEROL FUMARATE DIHYDRATE
  9. ADCIRCA [Concomitant]
     Active Substance: TADALAFIL
  10. SIMVASTATIN. [Concomitant]
     Active Substance: SIMVASTATIN
  11. OXYBUTYNIN. [Concomitant]
     Active Substance: OXYBUTYNIN CHLORIDE
  12. SERTRALINE [Concomitant]
     Active Substance: SERTRALINE HYDROCHLORIDE

REACTIONS (4)
  - Fall [Unknown]
  - Hip arthroplasty [Unknown]
  - Hip fracture [Unknown]
  - Hip surgery [Unknown]
